FAERS Safety Report 11150918 (Version 1)
Quarter: 2015Q2

REPORT INFORMATION
  Report Type: Spontaneous
  Country: CA (occurrence: CA)
  Receive Date: 20150601
  Receipt Date: 20150601
  Transmission Date: 20150821
  Serious: Yes (Other)
  Sender: FDA-Public Use
  Company Number: CA-SHIRE-CA201504569

PATIENT

DRUGS (1)
  1. MESALAMINE. [Suspect]
     Active Substance: MESALAMINE
     Indication: INFLAMMATORY BOWEL DISEASE
     Dosage: UNK UNK, UNKNOWN
     Route: 048
     Dates: start: 201505

REACTIONS (2)
  - Nephropathy toxic [Unknown]
  - Product use issue [Unknown]

NARRATIVE: CASE EVENT DATE: 201505
